FAERS Safety Report 17122533 (Version 4)
Quarter: 2020Q1

REPORT INFORMATION
  Report Type: Spontaneous
  Country: US (occurrence: US)
  Receive Date: 20191206
  Receipt Date: 20200110
  Transmission Date: 20200409
  Serious: Yes (Other)
  Sender: FDA-Public Use
  Company Number: US-PFIZER INC-2019446774

PATIENT
  Age: 57 Year
  Sex: Female

DRUGS (5)
  1. FLECTOR [Suspect]
     Active Substance: DICLOFENAC EPOLAMINE
     Indication: SWELLING
     Dosage: UNK
     Route: 061
  2. FLECTOR [Suspect]
     Active Substance: DICLOFENAC EPOLAMINE
     Indication: PAIN
  3. FLECTOR [Suspect]
     Active Substance: DICLOFENAC EPOLAMINE
     Indication: ARTHRALGIA
  4. CLONIDINE. [Concomitant]
     Active Substance: CLONIDINE
     Indication: NEUROPATHY PERIPHERAL
     Dosage: 0.1 MG, UNK (0.1MG OF 240)
  5. FLECTOR [Suspect]
     Active Substance: DICLOFENAC EPOLAMINE
     Indication: NEUROPATHY PERIPHERAL

REACTIONS (2)
  - Pneumonia [Unknown]
  - Fatigue [Unknown]
